FAERS Safety Report 4608890-4 (Version None)
Quarter: 2005Q1

REPORT INFORMATION
  Report Type: 
  Country: None (occurrence: None)
  Receive Date: 20050309
  Receipt Date: 20050224
  Transmission Date: 20050727
  Serious: Yes (Hospitalization)
  Sender: FDA-Public Use
  Company Number: 2005026750

PATIENT
  Age: 77 Year
  Sex: Male
  Weight: 75 kg

DRUGS (1)
  1. ZOLOFT [Suspect]
     Indication: DEPRESSION
     Dosage: 50 MG (50 MG, 1 IN 1 D), ORAL
     Route: 048
     Dates: start: 20031202, end: 20040215

REACTIONS (6)
  - BOWEL MOVEMENT IRREGULARITY [None]
  - CYTOLYTIC HEPATITIS [None]
  - DIARRHOEA [None]
  - PROCTITIS [None]
  - PROSTATE CANCER [None]
  - UNEVALUABLE EVENT [None]
